FAERS Safety Report 5205910-3 (Version None)
Quarter: 2007Q1

REPORT INFORMATION
  Report Type: 
  Country: None (occurrence: None)
  Receive Date: 20070111
  Receipt Date: 20061225
  Transmission Date: 20070707
  Serious: Yes (Hospitalization)
  Sender: FDA-Public Use
  Company Number: JP-AVENTIS-200613787JP

PATIENT
  Age: 29 Year
  Sex: Female
  Weight: 33 kg

DRUGS (1)
  1. LASIX [Suspect]
     Indication: WEIGHT CONTROL
     Route: 048

REACTIONS (5)
  - BLOOD CALCIUM DECREASED [None]
  - HYPOCHLORAEMIA [None]
  - HYPOKALAEMIA [None]
  - LISTLESS [None]
  - PSEUDO-BARTTER SYNDROME [None]
